FAERS Safety Report 19628221 (Version 1)
Quarter: 2021Q3

REPORT INFORMATION
  Report Type: Report from Study
  Country: US (occurrence: US)
  Receive Date: 20210729
  Receipt Date: 20210729
  Transmission Date: 20211014
  Serious: Yes (Hospitalization, Other)
  Sender: FDA-Public Use
  Company Number: US-ASTELLAS-2021US027940

PATIENT
  Age: 73 Year
  Sex: Female

DRUGS (3)
  1. ASG?22CE [Suspect]
     Active Substance: ENFORTUMAB VEDOTIN
     Indication: TRANSITIONAL CELL CARCINOMA
     Dosage: 1.25 MG, CYCLIC (DAYS 1,8 EVERY 21DAYS)
     Route: 042
     Dates: start: 20201014
  2. ASG?22CE [Suspect]
     Active Substance: ENFORTUMAB VEDOTIN
     Dosage: 1.25 MG, CYCLIC (DAYS 1,8 EVERY 21 DAYS)
     Route: 042
     Dates: end: 20210408
  3. ASG?22CE [Suspect]
     Active Substance: ENFORTUMAB VEDOTIN
     Dosage: 1.25 MG, CYCLIC (DAYS 1,8,15 EVERY 28 DAYS)
     Route: 042

REACTIONS (7)
  - Fatigue [Unknown]
  - Thrombocytopenia [Unknown]
  - Neuropathy peripheral [Recovering/Resolving]
  - Product use issue [Unknown]
  - Hyperglycaemia [Recovered/Resolved]
  - Rash [Recovering/Resolving]
  - Nausea [Recovered/Resolved]

NARRATIVE: CASE EVENT DATE: 20201014
